FAERS Safety Report 8400816-0 (Version None)
Quarter: 2012Q2

REPORT INFORMATION
  Report Type: 
  Country: None (occurrence: None)
  Receive Date: 20120531
  Receipt Date: 20120522
  Transmission Date: 20120825
  Serious: Yes (Other)
  Sender: FDA-Public Use
  Company Number: US-RB-040677-12

PATIENT
  Sex: Male
  Weight: 3.2 kg

DRUGS (3)
  1. NICOTINE [Suspect]
     Indication: PRODUCT USED FOR UNKNOWN INDICATION
     Dosage: ONE PACK/DAILY
     Route: 064
     Dates: end: 20110119
  2. SUBOXONE [Suspect]
     Indication: DRUG DEPENDENCE
     Route: 064
     Dates: end: 20100601
  3. SUBOXONE [Suspect]
     Dosage: VARIOUS TAPERED DOSES
     Route: 064
     Dates: start: 20100601, end: 20101101

REACTIONS (2)
  - PREMATURE BABY [None]
  - FOETAL EXPOSURE DURING PREGNANCY [None]
